FAERS Safety Report 11504561 (Version 1)
Quarter: 2015Q3

REPORT INFORMATION
  Report Type: Spontaneous
  Country: US (occurrence: US)
  Receive Date: 20150915
  Receipt Date: 20150915
  Transmission Date: 20151125
  Serious: No
  Sender: FDA-Public Use
  Company Number: US-ROCHE-801189

PATIENT
  Age: 54 Year
  Sex: Female

DRUGS (2)
  1. PEGASYS [Suspect]
     Active Substance: PEGINTERFERON ALFA-2A
     Indication: CHRONIC HEPATITIS C
     Dosage: 180 MCG/WEEK
     Route: 058
  2. COPEGUS [Suspect]
     Active Substance: RIBAVIRIN
     Indication: CHRONIC HEPATITIS C
     Dosage: 800MG/DAY DIVIDED DOSES
     Route: 065

REACTIONS (10)
  - Pain in extremity [Unknown]
  - Chest pain [Unknown]
  - Back pain [Unknown]
  - Weight decreased [Unknown]
  - Vomiting [Unknown]
  - Faeces discoloured [Unknown]
  - Influenza like illness [Unknown]
  - Nausea [Unknown]
  - Decreased appetite [Unknown]
  - Crying [Unknown]

NARRATIVE: CASE EVENT DATE: 20110827
